FAERS Safety Report 5225909-0 (Version None)
Quarter: 2007Q1

REPORT INFORMATION
  Report Type: 
  Country: None (occurrence: None)
  Receive Date: 20070129
  Receipt Date: 20070118
  Transmission Date: 20070707
  Serious: Yes (Hospitalization)
  Sender: FDA-Public Use
  Company Number: HQWYE108122JAN07

PATIENT
  Age: 77 Year
  Sex: Female

DRUGS (9)
  1. OSTELUC (ETODOLAC, CAPSULE) [Suspect]
     Indication: LUMBAR VERTEBRAL FRACTURE
     Dosage: 200 MG 2X PER 1 DAY
     Route: 048
     Dates: start: 20050315, end: 20060622
  2. LANSOPRAZOLE [Concomitant]
  3. GLORIAMIN (AZULENE SODIUM SULFONATE/LEVOGLUTAMIDE) [Concomitant]
  4. TOFRANIL [Concomitant]
  5. DEPAS (ETIZOLAM) [Concomitant]
  6. ALOSENN (ACHILLEA/RUBIA ROOT TINCTURE/SENNA FRUIT/SENNA LEAF/TARAXACUM [Concomitant]
  7. OTSUJITOU (HERBAL EXTRACTS NOS) [Concomitant]
  8. MAGNESIUM OXIDE [Concomitant]
  9. LAC B (LACTOBACILLUS BIFIDUS, LYOPHILIZED) [Concomitant]

REACTIONS (2)
  - COLITIS COLLAGENOUS [None]
  - COLON CANCER [None]
